FAERS Safety Report 4691444-1 (Version None)
Quarter: 2005Q2

REPORT INFORMATION
  Report Type: 
  Country: None (occurrence: None)
  Receive Date: 20050613
  Receipt Date: 20050225
  Transmission Date: 20051028
  Serious: Yes (Other)
  Sender: FDA-Public Use
  Company Number: S04-USA-07975-01

PATIENT
  Age: 52 Year
  Sex: Male
  Weight: 117.9352 kg

DRUGS (10)
  1. LEXAPRO [Suspect]
     Indication: DEPRESSION
     Dosage: 20 MG QD PO
     Route: 048
     Dates: start: 20040907, end: 20041222
  2. LEXAPRO [Suspect]
     Indication: DEPRESSION
     Dosage: 5 MG QD PO
     Route: 048
     Dates: start: 20050208
  3. LEXAPRO [Suspect]
     Indication: DEPRESSION
     Dosage: 10 MG QD PO
     Route: 048
     Dates: start: 20040120, end: 20040218
  4. LEXAPRO [Suspect]
     Indication: DEPRESSION
     Dosage: 10 MG QD PO
     Route: 048
     Dates: start: 20040416, end: 20040906
  5. LIPITOR [Concomitant]
  6. ATENOLOL [Concomitant]
  7. TRICOR [Concomitant]
  8. CYMBALTA [Concomitant]
  9. FLOMAX [Concomitant]
  10. EFFEXOR XR [Concomitant]

REACTIONS (3)
  - AGGRESSION [None]
  - LOSS OF LIBIDO [None]
  - SUICIDAL IDEATION [None]
